FAERS Safety Report 8854866 (Version 1)
Quarter: 2012Q4

REPORT INFORMATION
  Report Type: 
  Country: US (occurrence: US)
  Receive Date: 20121023
  Receipt Date: 20121023
  Transmission Date: 20130627
  Serious: No
  Sender: FDA-Public Use
  Company Number: US-PFIZER INC-2012262168

PATIENT
  Age: 83 Year
  Sex: Female

DRUGS (2)
  1. DEPO-MEDROL [Suspect]
     Indication: CARPAL TUNNEL SYNDROME
     Dosage: 20 mg, UNK
     Dates: start: 20121002
  2. PEPCID [Concomitant]
     Indication: DYSPEPSIA
     Dosage: 40 mg, daily

REACTIONS (3)
  - Musculoskeletal stiffness [Unknown]
  - Joint swelling [Unknown]
  - Pain [Unknown]
